FAERS Safety Report 7230880-6 (Version None)
Quarter: 2011Q1

REPORT INFORMATION
  Report Type: 
  Country: None (occurrence: None)
  Receive Date: 20110118
  Receipt Date: 20110109
  Transmission Date: 20110831
  Serious: No
  Sender: FDA-Public Use
  Company Number: US-JNJFOC-20100805584

PATIENT
  Sex: Female

DRUGS (2)
  1. IMODIUM A-D EZ CHEWS [Suspect]
     Route: 048
  2. IMODIUM A-D EZ CHEWS [Suspect]
     Indication: ILL-DEFINED DISORDER
     Dosage: 2 CHEWS AT ONCE
     Route: 048

REACTIONS (2)
  - PRODUCT ODOUR ABNORMAL [None]
  - ABDOMINAL DISCOMFORT [None]
